FAERS Safety Report 13781845 (Version 3)
Quarter: 2017Q3

REPORT INFORMATION
  Report Type: Report from Study
  Country: US (occurrence: US)
  Receive Date: 20170724
  Receipt Date: 20170811
  Transmission Date: 20171127
  Serious: Yes (Death, Hospitalization)
  Sender: FDA-Public Use
  Company Number: US-TESARO, INC-US-2017TSO01736

PATIENT

DRUGS (1)
  1. ZEJULA [Suspect]
     Active Substance: NIRAPARIB
     Indication: OVARIAN CANCER
     Dosage: 300 MG, QD
     Route: 048
     Dates: start: 201706, end: 20170712

REACTIONS (15)
  - Vomiting [Recovered/Resolved]
  - Colitis [Not Recovered/Not Resolved]
  - Rectal haemorrhage [Unknown]
  - Death [Fatal]
  - Abdominal pain upper [Unknown]
  - Decreased appetite [Not Recovered/Not Resolved]
  - Amnesia [Unknown]
  - Headache [Unknown]
  - Asthenia [Not Recovered/Not Resolved]
  - Bone pain [Unknown]
  - Eye pain [Unknown]
  - Constipation [Unknown]
  - Nausea [Not Recovered/Not Resolved]
  - Flatulence [Unknown]
  - Fatigue [Unknown]

NARRATIVE: CASE EVENT DATE: 201707
